FAERS Safety Report 4975098-2 (Version None)
Quarter: 2006Q2

REPORT INFORMATION
  Report Type: 
  Country: None (occurrence: None)
  Receive Date: 20060418
  Receipt Date: 20060214
  Transmission Date: 20061013
  Serious: Yes (Hospitalization)
  Sender: FDA-Public Use
  Company Number: JP-AVENTIS-200610512JP

PATIENT
  Age: 65 Year
  Sex: Female

DRUGS (7)
  1. ALLEGRA [Suspect]
     Indication: DERMATITIS ALLERGIC
     Route: 048
     Dates: start: 20060201, end: 20060204
  2. DIART [Suspect]
     Indication: OEDEMA
     Route: 048
     Dates: start: 20060201, end: 20060204
  3. SPIRONOLACTONE [Suspect]
     Indication: OEDEMA
     Route: 048
     Dates: start: 20060201, end: 20060204
  4. EUGLUCON [Concomitant]
     Indication: DIABETES MELLITUS
     Route: 048
     Dates: start: 20021009
  5. BLOPRESS [Concomitant]
     Indication: HYPERTENSION
     Route: 048
     Dates: start: 20021106
  6. KINEDAK [Concomitant]
     Indication: DIABETIC NEUROPATHY
     Route: 048
     Dates: start: 20021106, end: 20060207
  7. NORVASC [Concomitant]
     Indication: HYPERTENSION
     Route: 048
     Dates: start: 20021204

REACTIONS (11)
  - BILIRUBIN CONJUGATED INCREASED [None]
  - BLOOD ALKALINE PHOSPHATASE INCREASED [None]
  - BLOOD BILIRUBIN INCREASED [None]
  - GAIT DISTURBANCE [None]
  - GASTROENTERITIS [None]
  - HAEMOLYTIC ANAEMIA [None]
  - LYMPHOCYTE PERCENTAGE DECREASED [None]
  - NEUTROPHIL PERCENTAGE INCREASED [None]
  - TREATMENT NONCOMPLIANCE [None]
  - VOMITING [None]
  - WHITE BLOOD CELL COUNT INCREASED [None]
